FAERS Safety Report 8645781 (Version 3)
Quarter: 2013Q3

REPORT INFORMATION
  Report Type: Spontaneous
  Country: DE (occurrence: DE)
  Receive Date: 20120702
  Receipt Date: 20130726
  Transmission Date: 20140515
  Serious: Yes (Disabling, Other)
  Sender: FDA-Public Use
  Company Number: DE-ROCHE-1074561

PATIENT
  Sex: Female
  Weight: 88 kg

DRUGS (3)
  1. HERCEPTIN [Suspect]
     Indication: BREAST CANCER METASTATIC
     Route: 042
     Dates: start: 20050919
  2. HERCEPTIN [Suspect]
     Route: 065
     Dates: start: 200909
  3. ZOMETA [Suspect]
     Indication: PRODUCT USED FOR UNKNOWN INDICATION
     Route: 065
     Dates: start: 200602, end: 20090603

REACTIONS (11)
  - Musculoskeletal pain [Not Recovered/Not Resolved]
  - Myalgia [Not Recovered/Not Resolved]
  - Hepatobiliary disease [Recovered/Resolved]
  - Arthralgia [Unknown]
  - Myalgia [Unknown]
  - Osteonecrosis [Unknown]
  - Spinal osteoarthritis [Unknown]
  - Femur fracture [Recovered/Resolved]
  - Pain [Unknown]
  - Monoplegia [Unknown]
  - Metastases to bone [Unknown]
